FAERS Safety Report 24192747 (Version 2)
Quarter: 2024Q3

REPORT INFORMATION
  Report Type: Report from Study
  Country: GB (occurrence: GB)
  Receive Date: 20240809
  Receipt Date: 20240909
  Transmission Date: 20241017
  Serious: Yes (Hospitalization, Other)
  Sender: IPSEN
  Company Number: GB-IPSEN Group, Research and Development-2024-14983

PATIENT
  Sex: Female

DRUGS (1)
  1. LANREOTIDE ACETATE [Suspect]
     Active Substance: LANREOTIDE ACETATE
     Indication: Neuroendocrine tumour
     Dosage: UNKNOWN
     Route: 065

REACTIONS (3)
  - Cholecystitis [Recovered/Resolved]
  - Cholecystitis infective [Recovered/Resolved]
  - Inappropriate schedule of product administration [Unknown]
